FAERS Safety Report 21218079 (Version 1)
Quarter: 2022Q3

REPORT INFORMATION
  Report Type: Spontaneous
  Country: US (occurrence: None)
  Receive Date: 20220816
  Receipt Date: 20220816
  Transmission Date: 20221026
  Serious: No
  Sender: FDA-Public Use
  Company Number: None

PATIENT
  Sex: Female

DRUGS (2)
  1. ABILIFY [Suspect]
     Active Substance: ARIPIPRAZOLE
  2. ZOLOFT [Suspect]
     Active Substance: SERTRALINE HYDROCHLORIDE

REACTIONS (16)
  - Alopecia [None]
  - Limb discomfort [None]
  - Glucose tolerance impaired [None]
  - Tongue disorder [None]
  - Vision blurred [None]
  - Feeling jittery [None]
  - Pollakiuria [None]
  - Dry mouth [None]
  - Nasal dryness [None]
  - Musculoskeletal stiffness [None]
  - Joint swelling [None]
  - Haemorrhoids [None]
  - Anal incontinence [None]
  - Tinnitus [None]
  - Walking aid user [None]
  - Oral disorder [None]
